FAERS Safety Report 13292251 (Version 1)
Quarter: 2017Q1

REPORT INFORMATION
  Report Type: Report from Study
  Country: PL (occurrence: PL)
  Receive Date: 20170303
  Receipt Date: 20170303
  Transmission Date: 20170428
  Serious: Yes (Other)
  Sender: FDA-Public Use
  Company Number: PL-ADIENNEP-2017AD000036

PATIENT
  Age: 19 Year
  Sex: Female

DRUGS (2)
  1. VP-16 [Suspect]
     Active Substance: ETOPOSIDE
     Indication: BONE MARROW CONDITIONING REGIMEN
  2. THIOTEPA. [Suspect]
     Active Substance: THIOTEPA
     Indication: BONE MARROW CONDITIONING REGIMEN

REACTIONS (2)
  - Amenorrhoea [Unknown]
  - Ovarian failure [Unknown]
